FAERS Safety Report 8537519-8 (Version None)
Quarter: 2012Q3

REPORT INFORMATION
  Report Type: 
  Country: None (occurrence: None)
  Receive Date: 20120725
  Receipt Date: 20120717
  Transmission Date: 20120928
  Serious: Yes (Other)
  Sender: FDA-Public Use
  Company Number: US-MPIJNJ-2012-03682

PATIENT
  Sex: Male
  Weight: 74.15 kg

DRUGS (7)
  1. VELCADE [Suspect]
     Indication: MANTLE CELL LYMPHOMA
     Dosage: 2 MG, UNK
     Route: 042
     Dates: start: 20110128, end: 20110527
  2. LENALIDOMIDE [Suspect]
     Indication: MANTLE CELL LYMPHOMA
     Dosage: 10 MG, UNK
     Route: 042
     Dates: start: 20110128, end: 20110531
  3. RITUXIMAB [Suspect]
     Indication: MANTLE CELL LYMPHOMA
     Dosage: 780 MG, UNK
     Route: 042
     Dates: start: 20110128, end: 20110524
  4. LORTAB [Concomitant]
     Indication: PAIN
     Dosage: UNK
     Dates: start: 20120222
  5. LYRICA [Concomitant]
     Indication: PAIN
     Dosage: 150 MG, BID
     Dates: start: 20120117
  6. PERCOCET [Concomitant]
     Indication: PAIN
     Dosage: 7.5 MG, PRN
     Dates: start: 20111227
  7. DILAUDID [Concomitant]
     Indication: PAIN
     Dosage: 2 MG, PRN
     Dates: start: 20110719

REACTIONS (2)
  - NEOPLASM MALIGNANT [None]
  - ANAL CANCER [None]
